FAERS Safety Report 7763689 (Version 9)
Quarter: 2014Q4

REPORT INFORMATION
  Report Type: Report from Study
  Country: FR (occurrence: FR)
  Receive Date: 20110118
  Receipt Date: 20141229
  Transmission Date: 20150529
  Serious: Yes (Hospitalization)
  Sender: FDA-Public Use
  Company Number: FR-ROCHE-748738

PATIENT
  Age: 7 Year
  Sex: Male
  Weight: 29.8 kg

DRUGS (11)
  1. CYCLOPHOSPHAMIDE. [Suspect]
     Active Substance: CYCLOPHOSPHAMIDE
     Route: 042
     Dates: start: 20101229
  2. VINORELBINE [Suspect]
     Active Substance: VINORELBINE\VINORELBINE TARTRATE
     Indication: SARCOMA
     Dosage: DOSE:16-25 MG, FORM:16-25 MG/M2, LAST DOSE: 24 NOV 2010
     Route: 042
     Dates: start: 20101018
  3. CYCLOPHOSPHAMIDE. [Suspect]
     Active Substance: CYCLOPHOSPHAMIDE
     Indication: SARCOMA
     Dosage: DOSE:16-25 MG, FORM:16-25 MG/M2, LAST DOSE: 13 DEC 2010
     Route: 042
     Dates: start: 20101018
  4. CYCLOPHOSPHAMIDE. [Suspect]
     Active Substance: CYCLOPHOSPHAMIDE
     Route: 042
     Dates: start: 20101201, end: 20101228
  5. DOXORUBICIN [Suspect]
     Active Substance: DOXORUBICIN
     Indication: SARCOMA
     Dosage: DOSAGE FORM: 60MG/M2
     Route: 042
     Dates: start: 20100227
  6. CYCLOPHOSPHAMIDE. [Suspect]
     Active Substance: CYCLOPHOSPHAMIDE
     Route: 042
     Dates: start: 20101116, end: 20101130
  7. ACTINOMYCIN D [Suspect]
     Active Substance: DACTINOMYCIN
     Indication: SARCOMA METASTATIC
     Dosage: DOSAGE FORM: 1.5 MG/M2,  DRUG: ACYINOMYCIN D.
     Route: 042
  8. VINCRISTINE [Suspect]
     Active Substance: VINCRISTINE
     Indication: SARCOMA
     Dosage: DOSAGE FORM: 1.5MG/M2
     Route: 042
     Dates: start: 20100227
  9. BEVACIZUMAB [Suspect]
     Active Substance: BEVACIZUMAB
     Indication: SARCOMA METASTATIC
     Dosage: LAST DOSE PRIOR TO SAE: 01 DECEMBER 2010. DOSAGE FORM REPORTED AS: 5 MG/KG, TEMPORARILY INTERRUPTED
     Route: 042
  10. BACTRIM [Concomitant]
     Active Substance: SULFAMETHOXAZOLE\TRIMETHOPRIM
     Route: 065
     Dates: start: 20100227, end: 20101214
  11. IFOSFAMIDE. [Suspect]
     Active Substance: IFOSFAMIDE
     Indication: SARCOMA
     Dosage: DOSAGE FORM: 6G/M2
     Route: 042
     Dates: start: 20100227

REACTIONS (3)
  - Microangiopathy [Recovered/Resolved]
  - Epistaxis [Recovered/Resolved]
  - Post procedural haematoma [Recovered/Resolved]

NARRATIVE: CASE EVENT DATE: 20101130
